FAERS Safety Report 8978292 (Version 1)
Quarter: 2012Q4

REPORT INFORMATION
  Report Type: 
  Country: US (occurrence: US)
  Receive Date: 20121221
  Receipt Date: 20121221
  Transmission Date: 20130627
  Serious: Yes (Other)
  Sender: FDA-Public Use
  Company Number: US-AMGEN-USASP2012081337

PATIENT
  Age: 57 Year
  Sex: Female

DRUGS (2)
  1. ENBREL [Suspect]
     Indication: RHEUMATOID ARTHRITIS
     Dosage: 50 mg, qwk
     Dates: start: 200804
  2. ANTIHISTAMINES [Concomitant]
     Dosage: UNK

REACTIONS (2)
  - Urticaria [Recovered/Resolved]
  - Idiopathic urticaria [Not Recovered/Not Resolved]
